FAERS Safety Report 8628198 (Version 2)
Quarter: 2012Q4

REPORT INFORMATION
  Report Type: 
  Country: US (occurrence: US)
  Receive Date: 20120621
  Receipt Date: 20120927
  Transmission Date: 20130627
  Serious: Yes (Hospitalization)
  Sender: FDA-Public Use
  Company Number: US-B.I. PHARMACEUTICALS,INC./RIDGEFIELD-2012-BP-13734BP

PATIENT
  Age: 54 Year
  Sex: Male
  Weight: 95.7 kg

DRUGS (2)
  1. PRADAXA [Suspect]
     Indication: ATRIAL FIBRILLATION
     Dosage: 300 mg
     Route: 048
     Dates: start: 20120212
  2. AMIODARONE [Concomitant]
     Indication: ATRIAL FIBRILLATION

REACTIONS (4)
  - Cerebrovascular accident [Recovered/Resolved with Sequelae]
  - Atrial flutter [Recovered/Resolved]
  - Embolic stroke [Not Recovered/Not Resolved]
  - Visual impairment [Not Recovered/Not Resolved]
